FAERS Safety Report 6856334-4 (Version None)
Quarter: 2010Q3

REPORT INFORMATION
  Report Type: 
  Country: None (occurrence: None)
  Receive Date: 20100719
  Receipt Date: 20100714
  Transmission Date: 20110219
  Serious: Yes (Other)
  Sender: FDA-Public Use
  Company Number: GXKR2010DE07308

PATIENT
  Sex: Female
  Weight: 64 kg

DRUGS (2)
  1. DOXY 1A PHARMA (NGX) [Suspect]
     Indication: SINUSITIS
     Dosage: 100 MG, QD
     Route: 048
     Dates: start: 20100627, end: 20100629
  2. DOXY 1A PHARMA (NGX) [Suspect]
     Dosage: 100 MG, QD
     Route: 048

REACTIONS (2)
  - RETINAL DISORDER [None]
  - VISUAL FIELD DEFECT [None]
